FAERS Safety Report 21793156 (Version 1)
Quarter: 2022Q4

REPORT INFORMATION
  Report Type: 
  Country: None (occurrence: PT)
  Receive Date: 20221229
  Receipt Date: 20221229
  Transmission Date: 20230113
  Serious: Yes (Hospitalization, Other)
  Sender: FDA-Public Use
  Company Number: PT-Therakind Limited-2136254

PATIENT
  Age: 4 Year
  Sex: Male

DRUGS (4)
  1. METHOTREXATE [Suspect]
     Active Substance: METHOTREXATE
     Indication: Acute lymphocytic leukaemia
  2. DEXAMETHASONE [Suspect]
     Active Substance: DEXAMETHASONE
  3. MERCAPTOPURINE [Suspect]
     Active Substance: MERCAPTOPURINE
  4. VINCRISTINE [Suspect]
     Active Substance: VINCRISTINE

REACTIONS (4)
  - Cholecystitis acute [Unknown]
  - Hypoalbuminaemia [Unknown]
  - Abnormal clotting factor [Unknown]
  - Pancreatitis acute [Unknown]
